FAERS Safety Report 9766490 (Version 1)
Quarter: 2013Q4

REPORT INFORMATION
  Report Type: Spontaneous
  Country: US (occurrence: US)
  Receive Date: 20131217
  Receipt Date: 20131217
  Transmission Date: 20140711
  Serious: No
  Sender: FDA-Public Use
  Company Number: US-GLAXOSMITHKLINE-A1028857A

PATIENT
  Age: 54 Year
  Sex: Male
  Weight: 113.6 kg

DRUGS (9)
  1. VOTRIENT [Suspect]
     Indication: RENAL CANCER
     Dosage: 600MG PER DAY
     Route: 048
     Dates: start: 201303
  2. HYDRALAZINE [Concomitant]
  3. ATORVASTATIN [Concomitant]
  4. LOSARTAN WITH HYDROCHLOROTHIAZIDE [Concomitant]
  5. AMLODIPINE [Concomitant]
  6. GLYBURIDE [Concomitant]
  7. JANUMET [Concomitant]
  8. BYSTOLIC [Concomitant]
  9. OMEPRAZOLE [Concomitant]

REACTIONS (9)
  - Hypertension [Unknown]
  - Hair colour changes [Unknown]
  - Hypoaesthesia [Unknown]
  - Paraesthesia [Unknown]
  - Neuralgia [Unknown]
  - Abdominal discomfort [Not Recovered/Not Resolved]
  - Yellow skin [Not Recovered/Not Resolved]
  - Palmar-plantar erythrodysaesthesia syndrome [Recovering/Resolving]
  - Drug effect decreased [Unknown]
